FAERS Safety Report 24653802 (Version 2)
Quarter: 2025Q3

REPORT INFORMATION
  Report Type: Spontaneous
  Country: EU (occurrence: EU)
  Receive Date: 20241122
  Receipt Date: 20250809
  Transmission Date: 20251020
  Serious: Yes (Life-Threatening, Hospitalization, Other)
  Sender: ALEXION PHARMACEUTICALS
  Company Number: EU-ASTRAZENECA-202411GLO018039ES

PATIENT
  Age: 63 Year
  Sex: Female
  Weight: 75.6 kg

DRUGS (5)
  1. QUETIAPINE [Interacting]
     Active Substance: QUETIAPINE
     Indication: Suicide attempt
     Dosage: 50 MILLIGRAM, QD
     Dates: start: 20240529, end: 20240529
  2. CLORAZEPATE DIPOTASSIUM [Interacting]
     Active Substance: CLORAZEPATE DIPOTASSIUM
     Indication: Suicide attempt
     Dates: start: 20240529, end: 20240529
  3. PREGABALIN [Suspect]
     Active Substance: PREGABALIN
     Route: 065
  4. VENLAFAXINE [Suspect]
     Active Substance: VENLAFAXINE HYDROCHLORIDE
     Route: 065
  5. LORAZEPAM [Interacting]
     Active Substance: LORAZEPAM
     Dates: start: 20240529, end: 20240529

REACTIONS (5)
  - Loss of consciousness [Recovered/Resolved]
  - Hypotension [Recovered/Resolved]
  - Hypoxia [Recovered/Resolved]
  - Toxicity to various agents [Unknown]
  - Drug interaction [Unknown]

NARRATIVE: CASE EVENT DATE: 20190801
